FAERS Safety Report 25584122 (Version 1)
Quarter: 2025Q3

REPORT INFORMATION
  Report Type: Spontaneous
  Country: US (occurrence: US)
  Receive Date: 20250721
  Receipt Date: 20250721
  Transmission Date: 20251021
  Serious: No
  Sender: BIOCON
  Company Number: US-MIMS-BCONMC-5883

PATIENT

DRUGS (1)
  1. FULPHILA [Suspect]
     Active Substance: PEGFILGRASTIM-JMDB
     Indication: Product used for unknown indication
     Dosage: 6 MG, Q2W (EVERY OTHER WEEK)
     Route: 030
     Dates: start: 20240301

REACTIONS (1)
  - Device issue [Unknown]
